FAERS Safety Report 4672415-8 (Version None)
Quarter: 2005Q2

REPORT INFORMATION
  Report Type: 
  Country: None (occurrence: None)
  Receive Date: 20050524
  Receipt Date: 20050201
  Transmission Date: 20051028
  Serious: Yes (Congenital Anomaly)
  Sender: FDA-Public Use
  Company Number: US-ABBOTT-05P-163-0289069-00

PATIENT
  Sex: Male
  Weight: 1.764 kg

DRUGS (5)
  1. KALETRA [Suspect]
     Indication: DRUG EXPOSURE DURING PREGNANCY
  2. LAMIVUDINE [Suspect]
     Indication: DRUG EXPOSURE DURING PREGNANCY
  3. STAVUDINE [Suspect]
     Indication: DRUG EXPOSURE DURING PREGNANCY
  4. ITRACONAZOLE [Suspect]
     Indication: DRUG EXPOSURE DURING PREGNANCY
  5. ZIDOVUDINE [Concomitant]

REACTIONS (18)
  - CANDIDIASIS [None]
  - CEREBRAL ATROPHY CONGENITAL [None]
  - EAR MALFORMATION [None]
  - FOETAL DISORDER [None]
  - HYPERTONIA [None]
  - INFANTILE SPITTING UP [None]
  - JOINT CONTRACTURE [None]
  - LIVEDO RETICULARIS [None]
  - MECONIUM STAIN [None]
  - MICROCEPHALY [None]
  - MUCOUS MEMBRANE DISORDER [None]
  - MUSCLE TIGHTNESS [None]
  - NERVOUS SYSTEM DISORDER [None]
  - OPISTHOTONUS [None]
  - PENILE SIZE REDUCED [None]
  - SMALL FOR DATES BABY [None]
  - TENDON DISORDER [None]
  - UMBILICAL CORD ABNORMALITY [None]
